FAERS Safety Report 15378861 (Version 2)
Quarter: 2018Q4

REPORT INFORMATION
  Report Type: Spontaneous
  Country: GB (occurrence: DK)
  Receive Date: 20180913
  Receipt Date: 20180920
  Transmission Date: 20190204
  Serious: Yes (Other)
  Sender: FDA-Public Use
  Company Number: GB-GLAXOSMITHKLINE-DK2018GSK165234

PATIENT

DRUGS (3)
  1. MOTIFENE (DICLOFENAC) [Suspect]
     Active Substance: DICLOFENAC SODIUM
     Indication: PRODUCT USED FOR UNKNOWN INDICATION
     Dosage: UNK
  2. VOLTAREN (DICLOFENAC DIETHYLAMMONIUM SALT) [Suspect]
     Active Substance: DICLOFENAC DIETHYLAMINE
     Indication: PRODUCT USED FOR UNKNOWN INDICATION
     Dosage: UNK
  3. DICLOMAX (DICLOFENAC SODIUM) [Suspect]
     Active Substance: DICLOFENAC SODIUM
     Indication: PRODUCT USED FOR UNKNOWN INDICATION
     Dosage: UNK

REACTIONS (9)
  - Gastrointestinal haemorrhage [Unknown]
  - Cardiac disorder [Unknown]
  - Gastrointestinal disorder [Unknown]
  - Cerebrovascular accident [Unknown]
  - Myocardial infarction [Unknown]
  - Heart rate irregular [Unknown]
  - Ischaemic stroke [Unknown]
  - Cardiovascular disorder [Unknown]
  - Cardiac failure [Unknown]
